FAERS Safety Report 5919850-5 (Version None)
Quarter: 2008Q4

REPORT INFORMATION
  Report Type: 
  Country: None (occurrence: None)
  Receive Date: 20081015
  Receipt Date: 20081007
  Transmission Date: 20090506
  Serious: Yes (Other)
  Sender: FDA-Public Use
  Company Number: US-GILEAD-2008-0017316

PATIENT
  Age: 74 Year
  Sex: Male

DRUGS (2)
  1. VIREAD [Suspect]
     Indication: HIV INFECTION
     Dates: start: 20080101, end: 20080716
  2. TELBIVUDINE [Concomitant]
     Dates: start: 20080101

REACTIONS (1)
  - MUSCULAR WEAKNESS [None]
